FAERS Safety Report 16772640 (Version 1)
Quarter: 2019Q3

REPORT INFORMATION
  Report Type: Spontaneous
  Country: US (occurrence: US)
  Receive Date: 20190904
  Receipt Date: 20190904
  Transmission Date: 20191005
  Serious: Yes (Other)
  Sender: FDA-Public Use
  Company Number: US-PFIZER INC-2019379024

PATIENT
  Age: 69 Year
  Sex: Female

DRUGS (1)
  1. PREMARIN [Suspect]
     Active Substance: ESTROGENS, CONJUGATED
     Dosage: 1.25MG 3 TABLETS ONCE DAILY

REACTIONS (5)
  - Malignant peritoneal neoplasm [Unknown]
  - Malignant melanoma [Unknown]
  - Feeling abnormal [Unknown]
  - Albright^s disease [Unknown]
  - Candida infection [Unknown]
